FAERS Safety Report 9607371 (Version 2)
Quarter: 2013Q4

REPORT INFORMATION
  Report Type: Report from Study
  Country: CA (occurrence: CA)
  Receive Date: 20131009
  Receipt Date: 20131009
  Transmission Date: 20140711
  Serious: Yes (Death, Hospitalization)
  Sender: FDA-Public Use
  Company Number: CA-CELGENEUS-028-22393-13082904

PATIENT
  Age: 68 Year
  Sex: Male

DRUGS (1)
  1. ISTODAX [Suspect]
     Indication: PERIPHERAL T-CELL LYMPHOMA UNSPECIFIED
     Dosage: 14 MILLIGRAM/SQ. METER
     Route: 041
     Dates: start: 20130416, end: 20130528

REACTIONS (3)
  - Death [Fatal]
  - Cellulitis [Recovered/Resolved]
  - Peripheral T-cell lymphoma unspecified [Recovered/Resolved]
